FAERS Safety Report 7721238-1 (Version None)
Quarter: 2011Q3

REPORT INFORMATION
  Report Type: 
  Country: None (occurrence: None)
  Receive Date: 20110831
  Receipt Date: 20110826
  Transmission Date: 20111222
  Serious: Yes (Life-Threatening, Hospitalization, Other)
  Sender: FDA-Public Use
  Company Number: IE-ABBOTT-11P-229-0837656-00

PATIENT
  Age: 4 Year
  Sex: Male

DRUGS (6)
  1. VALPROIC ACID [Suspect]
     Indication: EPILEPSY
     Dosage: PROLONGED-RELEASE GRANULES, 2 IN 1 D
     Route: 048
     Dates: start: 20110601
  2. ALBUTEROL [Concomitant]
     Indication: PRODUCT USED FOR UNKNOWN INDICATION
  3. PHENOBARBITAL TAB [Concomitant]
     Indication: PRODUCT USED FOR UNKNOWN INDICATION
     Dates: start: 20071101, end: 20110701
  4. LAMOTRIGINE [Concomitant]
     Indication: PRODUCT USED FOR UNKNOWN INDICATION
     Dates: start: 20110701
  5. VALPROATE SODIUM [Suspect]
     Route: 048
     Dates: start: 20070601, end: 20110601
  6. VALPROATE SODIUM [Suspect]
     Indication: EPILEPSY
     Route: 048
     Dates: start: 20070601, end: 20070601

REACTIONS (10)
  - DRUG INEFFECTIVE [None]
  - STARING [None]
  - STATUS EPILEPTICUS [None]
  - VOMITING [None]
  - EYE DISORDER [None]
  - GRAND MAL CONVULSION [None]
  - EPILEPSY [None]
  - CONVULSION [None]
  - MUSCLE TWITCHING [None]
  - DYSKINESIA [None]
